FAERS Safety Report 8553432 (Version 17)
Quarter: 2016Q4

REPORT INFORMATION
  Report Type: Report from Study
  Country: CA (occurrence: CA)
  Receive Date: 20120509
  Receipt Date: 20161111
  Transmission Date: 20170207
  Serious: Yes (Hospitalization, Other)
  Sender: FDA-Public Use
  Company Number: PHHY2012CA004188

PATIENT
  Age: 80 Year
  Sex: Male

DRUGS (5)
  1. SANDOSTATIN LAR DEPOT [Suspect]
     Active Substance: OCTREOTIDE ACETATE
     Indication: NEUROENDOCRINE TUMOUR
     Dosage: 30 MG, QMO (EVERY 4 WEEKS)
     Route: 030
     Dates: start: 20100826
  2. SYNTHROID [Concomitant]
     Active Substance: LEVOTHYROXINE SODIUM
     Indication: PRODUCT USED FOR UNKNOWN INDICATION
     Route: 065
  3. PRADAX [Concomitant]
     Active Substance: DABIGATRAN ETEXILATE MESYLATE
     Indication: PRODUCT USED FOR UNKNOWN INDICATION
     Route: 065
  4. JAMP ASA [Concomitant]
     Indication: PRODUCT USED FOR UNKNOWN INDICATION
     Route: 065
  5. IRBESARTAN. [Concomitant]
     Active Substance: IRBESARTAN
     Indication: PRODUCT USED FOR UNKNOWN INDICATION
     Route: 065

REACTIONS (25)
  - Myalgia [Unknown]
  - Musculoskeletal pain [Unknown]
  - Injection site pain [Unknown]
  - Chest pain [Unknown]
  - Cerebrovascular accident [Recovered/Resolved with Sequelae]
  - Muscle tightness [Unknown]
  - Wound infection [Unknown]
  - Blood pressure fluctuation [Unknown]
  - Malaise [Unknown]
  - Contusion [Unknown]
  - Erythema [Unknown]
  - Atrial fibrillation [Unknown]
  - Blood pressure increased [Unknown]
  - Pain [Unknown]
  - Eating disorder [Recovered/Resolved]
  - Injection site swelling [Recovering/Resolving]
  - Injection site haemorrhage [Unknown]
  - Decreased appetite [Recovering/Resolving]
  - Pneumonia [Unknown]
  - Heart rate irregular [Unknown]
  - Abdominal pain [Recovering/Resolving]
  - Hot flush [Unknown]
  - Skin discolouration [Unknown]
  - Fear of injection [Unknown]
  - Injection site induration [Recovering/Resolving]

NARRATIVE: CASE EVENT DATE: 20120523
